FAERS Safety Report 15340812 (Version 1)
Quarter: 2018Q3

REPORT INFORMATION
  Report Type: Spontaneous
  Country: US (occurrence: US)
  Receive Date: 20180831
  Receipt Date: 20180831
  Transmission Date: 20181010
  Serious: No
  Sender: FDA-Public Use
  Company Number: US-SA-2018SA241824

PATIENT
  Age: 13 Year
  Sex: Male
  Weight: 95.24 kg

DRUGS (12)
  1. FABRAZYME [Suspect]
     Active Substance: AGALSIDASE BETA
     Indication: FABRY^S DISEASE
     Dosage: 80 MG, QW
     Route: 041
  2. HEPARIN [Concomitant]
     Active Substance: HEPARIN SODIUM
     Indication: FLUSHING
     Dosage: 100 UN/ML
     Route: 042
     Dates: start: 20170712
  3. NASONEX [Concomitant]
     Active Substance: MOMETASONE FUROATE
     Dosage: UNK
     Dates: start: 20100929
  4. SODIUM CHLORIDE. [Concomitant]
     Active Substance: SODIUM CHLORIDE
     Indication: FLUSHING
     Dosage: UNK, 0.9%
     Route: 042
     Dates: start: 20170712
  5. ZOFRAN [ONDANSETRON] [Concomitant]
     Dosage: 1 TAB, Q8H
     Route: 048
     Dates: start: 20150102
  6. MELATONIN [Concomitant]
     Active Substance: MELATONIN
     Dosage: UNK
     Route: 048
     Dates: start: 20100929
  7. IBUPROFEN. [Concomitant]
     Active Substance: IBUPROFEN
     Indication: PREMEDICATION
     Dosage: 200 MG
     Route: 048
     Dates: start: 20170712
  8. IBUPROFEN. [Concomitant]
     Active Substance: IBUPROFEN
     Dosage: UNK
     Dates: start: 20100929
  9. NEURONTIN [Concomitant]
     Active Substance: GABAPENTIN
     Dosage: I CAP, TID
     Route: 048
     Dates: start: 20140929
  10. NORMAL SALINE [Concomitant]
     Active Substance: SODIUM CHLORIDE
     Dosage: UNK, 0.9%
     Route: 042
     Dates: start: 20170712
  11. STERILE WATER [Concomitant]
     Active Substance: WATER
     Dosage: UNK, 1 DOSE
     Route: 042
     Dates: start: 20170712
  12. EPINEPHRINE. [Concomitant]
     Active Substance: EPINEPHRINE
     Indication: ANAPHYLACTIC REACTION
     Dosage: 0.3 MG, PRN
     Route: 030
     Dates: start: 20170712

REACTIONS (3)
  - Blood pressure increased [Unknown]
  - Chills [Unknown]
  - Tremor [Unknown]
